FAERS Safety Report 18968235 (Version 1)
Quarter: 2021Q1

REPORT INFORMATION
  Report Type: Spontaneous
  Country: GB (occurrence: GB)
  Receive Date: 20210304
  Receipt Date: 20210304
  Transmission Date: 20210420
  Serious: Yes (Death, Other)
  Sender: FDA-Public Use
  Company Number: GB-ROCHE-2783157

PATIENT
  Age: 96 Year
  Sex: Female

DRUGS (1)
  1. TOCILIZUMAB. [Suspect]
     Active Substance: TOCILIZUMAB
     Indication: CORONAVIRUS INFECTION
     Route: 065
     Dates: start: 20210211

REACTIONS (2)
  - COVID-19 pneumonia [Fatal]
  - Urosepsis [Unknown]

NARRATIVE: CASE EVENT DATE: 20210215
